FAERS Safety Report 4352663-7 (Version None)
Quarter: 2004Q2

REPORT INFORMATION
  Report Type: 
  Country: None (occurrence: None)
  Receive Date: 20040504
  Receipt Date: 20040427
  Transmission Date: 20050107
  Serious: Yes (Other)
  Sender: FDA-Public Use
  Company Number: US-BRISTOL-MYERS SQUIBB COMPANY-12572194

PATIENT
  Age: 41 Year
  Sex: Male
  Weight: 154 kg

DRUGS (3)
  1. SUSTIVA [Suspect]
     Indication: HIV INFECTION
     Dosage: WITHHELD FROM 09- TO 18-JAN-2004
     Route: 048
     Dates: start: 20030721
  2. KALETRA [Suspect]
     Indication: HIV INFECTION
     Dosage: WITHHELD FROM 09- TO 18-JAN-2004
     Route: 048
     Dates: start: 20030721
  3. BACTRIM DS [Concomitant]
     Dates: start: 20030718

REACTIONS (2)
  - LIPASE INCREASED [None]
  - LOW DENSITY LIPOPROTEIN INCREASED [None]
